FAERS Safety Report 12307113 (Version 1)
Quarter: 2016Q2

REPORT INFORMATION
  Report Type: Spontaneous
  Country: US (occurrence: US)
  Receive Date: 20160426
  Receipt Date: 20160426
  Transmission Date: 20160815
  Serious: No
  Sender: FDA-Public Use
  Company Number: US-ALKERMES INC.-ALK-2015-001650

PATIENT

DRUGS (15)
  1. NALTREXONE [Concomitant]
     Active Substance: NALTREXONE
     Indication: DRUG DEPENDENCE
  2. SEROQUEL [Concomitant]
     Active Substance: QUETIAPINE FUMARATE
     Indication: NIGHTMARE
  3. MIRTAZAPINE. [Concomitant]
     Active Substance: MIRTAZAPINE
     Indication: DEPRESSION
     Dosage: 15 MG, HS
     Route: 048
  4. PRAZOSIN [Concomitant]
     Active Substance: PRAZOSIN
     Indication: NIGHTMARE
     Dosage: 5 MG, QAM
     Route: 048
  5. PRAZOSIN [Concomitant]
     Active Substance: PRAZOSIN
     Dosage: 10 MG, QHS
     Route: 048
  6. HYDROXYZINE [Concomitant]
     Active Substance: HYDROXYZINE\HYDROXYZINE HYDROCHLORIDE
     Indication: PRODUCT USED FOR UNKNOWN INDICATION
     Dosage: 25-50 MG, TID
     Route: 048
  7. NEFAZODONE [Concomitant]
     Active Substance: NEFAZODONE
     Indication: DEPRESSION
     Dosage: 100 MG, BID
     Route: 048
  8. VIVITROL [Suspect]
     Active Substance: NALTREXONE
     Indication: ALCOHOLISM
     Dosage: 380 MG, QMO
     Route: 030
     Dates: start: 20150212, end: 20150701
  9. VIVITROL [Suspect]
     Active Substance: NALTREXONE
     Indication: DRUG DEPENDENCE
     Dosage: 380 MG, QMO
     Route: 030
     Dates: start: 20151216
  10. NALTREXONE [Concomitant]
     Active Substance: NALTREXONE
     Indication: ALCOHOLISM
     Dosage: 50 MG, QD
     Route: 048
     Dates: start: 201511
  11. STRATTERA [Concomitant]
     Active Substance: ATOMOXETINE HYDROCHLORIDE
     Dosage: 120 MG, QD
     Route: 048
  12. SEROQUEL [Concomitant]
     Active Substance: QUETIAPINE FUMARATE
     Indication: SLEEP DISORDER
     Dosage: 150 MG, QHS
     Route: 048
  13. MIRTAZAPINE. [Concomitant]
     Active Substance: MIRTAZAPINE
     Indication: SLEEP DISORDER
  14. STRATTERA [Concomitant]
     Active Substance: ATOMOXETINE HYDROCHLORIDE
     Indication: ATTENTION DEFICIT/HYPERACTIVITY DISORDER
     Dosage: 120 MG, QD
  15. SEROQUEL [Concomitant]
     Active Substance: QUETIAPINE FUMARATE
     Indication: NIGHT SWEATS

REACTIONS (10)
  - Product reconstitution issue [Recovered/Resolved]
  - Injection site pain [Unknown]
  - Drug dose omission [Recovered/Resolved]
  - Dependence [Recovered/Resolved]
  - Weight decreased [Unknown]
  - Product quality issue [Recovered/Resolved]
  - Drug administration error [Recovered/Resolved]
  - Injection site reaction [Unknown]
  - Alcoholism [Recovered/Resolved]
  - Alcohol use [Recovered/Resolved]

NARRATIVE: CASE EVENT DATE: 2015
